FAERS Safety Report 8164266-7 (Version None)
Quarter: 2012Q1

REPORT INFORMATION
  Report Type: 
  Country: None (occurrence: None)
  Receive Date: 20120224
  Receipt Date: 20111221
  Transmission Date: 20120608
  Serious: No
  Sender: FDA-Public Use
  Company Number: US-ASTRAZENECA-2011SE77752

PATIENT
  Age: 74 Year
  Sex: Male

DRUGS (1)
  1. VIMOVO [Suspect]
     Dosage: 500MG/20MG DAILY
     Route: 048

REACTIONS (2)
  - HEAD INJURY [None]
  - WOUND HAEMORRHAGE [None]
